FAERS Safety Report 4457421-0 (Version None)
Quarter: 2004Q3

REPORT INFORMATION
  Report Type: 
  Country: None (occurrence: None)
  Receive Date: 20040901
  Receipt Date: 20031107
  Transmission Date: 20050211
  Serious: Yes (Life-Threatening)
  Sender: FDA-Public Use
  Company Number: 03-11-1403

PATIENT
  Age: 68 Year
  Sex: Male
  Weight: 108.8633 kg

DRUGS (5)
  1. VERAPAMIL HYDROCHLORIDE [Suspect]
     Indication: ANGINA PECTORIS
     Dosage: 240MG BID ORAL
     Route: 048
  2. VERAPAMIL HYDROCHLORIDE [Suspect]
     Indication: ATRIAL FIBRILLATION
     Dosage: 240MG BID ORAL
     Route: 048
  3. VERAPAMIL HYDROCHLORIDE [Suspect]
     Indication: HYPERTENSION
     Dosage: 240MG BID ORAL
     Route: 048
  4. WARFARIN SODIUM [Concomitant]
  5. ZOLOFT [Concomitant]

REACTIONS (4)
  - ARRHYTHMIA [None]
  - ASTHENIA [None]
  - DIZZINESS [None]
  - THERAPEUTIC RESPONSE DECREASED [None]
